FAERS Safety Report 18621438 (Version 2)
Quarter: 2022Q3

REPORT INFORMATION
  Report Type: Spontaneous
  Country: SE (occurrence: SE)
  Receive Date: 20201216
  Receipt Date: 20220714
  Transmission Date: 20221027
  Serious: Yes (Other)
  Sender: FDA-Public Use
  Company Number: SE-GLAXOSMITHKLINE-SE2020246624

PATIENT

DRUGS (1)
  1. CLEMASTINE FUMARATE [Suspect]
     Active Substance: CLEMASTINE FUMARATE
     Indication: Hypersensitivity
     Dosage: UNK, 1 MG

REACTIONS (2)
  - Drug dependence [Unknown]
  - Product use issue [Unknown]
